FAERS Safety Report 15999581 (Version 1)
Quarter: 2019Q1

REPORT INFORMATION
  Report Type: Spontaneous
  Country: US (occurrence: US)
  Receive Date: 20190222
  Receipt Date: 20190222
  Transmission Date: 20190418
  Serious: Yes (Hospitalization, Disabling)
  Sender: FDA-Public Use
  Company Number: None

PATIENT
  Age: 35 Year
  Sex: Male
  Weight: 76.5 kg

DRUGS (1)
  1. INVEGA SUSTENNA [Suspect]
     Active Substance: PALIPERIDONE PALMITATE
     Indication: POST-TRAUMATIC STRESS DISORDER
     Dosage: ?          OTHER FREQUENCY:MONTHLY;?
     Route: 030
     Dates: start: 20180309, end: 20180315

REACTIONS (11)
  - Hormone level abnormal [None]
  - General physical health deterioration [None]
  - Mental disorder [None]
  - Asthenia [None]
  - Product prescribing issue [None]
  - Loss of libido [None]
  - Incorrect product dosage form administered [None]
  - Sleep disorder [None]
  - Emotional distress [None]
  - Headache [None]
  - Infertility [None]

NARRATIVE: CASE EVENT DATE: 20180315
